FAERS Safety Report 8046801-2 (Version None)
Quarter: 2012Q1

REPORT INFORMATION
  Report Type: 
  Country: None (occurrence: None)
  Receive Date: 20120116
  Receipt Date: 20120106
  Transmission Date: 20120608
  Serious: No
  Sender: FDA-Public Use
  Company Number: US-BIOGENIDEC-2012BI000938

PATIENT
  Age: 40 Year
  Sex: Female

DRUGS (2)
  1. TYSABRI [Suspect]
     Indication: MULTIPLE SCLEROSIS
     Route: 042
     Dates: start: 20081017, end: 20110405
  2. TYSABRI [Suspect]
     Route: 042
     Dates: start: 20111221

REACTIONS (6)
  - PAIN [None]
  - TREMOR [None]
  - DEPRESSION [None]
  - TIC [None]
  - FATIGUE [None]
  - MULTIPLE SCLEROSIS RELAPSE [None]
